FAERS Safety Report 9425950 (Version 1)
Quarter: 2013Q3

REPORT INFORMATION
  Report Type: Spontaneous
  Country: AU (occurrence: AU)
  Receive Date: 20130729
  Receipt Date: 20130729
  Transmission Date: 20140515
  Serious: Yes (Life-Threatening, Hospitalization)
  Sender: FDA-Public Use
  Company Number: AU-ASTRAZENECA-2013SE56355

PATIENT
  Age: 21613 Day
  Sex: Female

DRUGS (5)
  1. CHLORHEXIDINE [Suspect]
  2. FENTANYL [Suspect]
  3. PROPOFOL [Suspect]
  4. CEPHAZOLIN SODIUM [Suspect]
  5. ROCURONIUM BROMIDE [Suspect]

REACTIONS (1)
  - Circulatory collapse [Recovered/Resolved]
